FAERS Safety Report 9285177 (Version 2)
Quarter: 2013Q2

REPORT INFORMATION
  Report Type: Spontaneous
  Country: US (occurrence: US)
  Receive Date: 20130513
  Receipt Date: 20130513
  Transmission Date: 20140414
  Serious: No
  Sender: FDA-Public Use
  Company Number: US-MYLANLABS-2013S1006339

PATIENT
  Age: 69 Year
  Sex: Female
  Weight: 65.77 kg

DRUGS (4)
  1. ACEBUTOLOL HCL [Suspect]
     Indication: ARRHYTHMIA
     Route: 048
     Dates: start: 201301
  2. NEXIUM [Concomitant]
     Indication: DYSPEPSIA
     Route: 048
  3. VITAMIN [Concomitant]
     Route: 048
  4. BLOOD PRESSURE MEDICATION [Concomitant]
     Indication: BLOOD PRESSURE INCREASED
     Route: 048

REACTIONS (2)
  - Palpitations [Not Recovered/Not Resolved]
  - Rash [Not Recovered/Not Resolved]
